FAERS Safety Report 18422243 (Version 4)
Quarter: 2020Q4

REPORT INFORMATION
  Report Type: Spontaneous
  Country: US (occurrence: US)
  Receive Date: 20201023
  Receipt Date: 20201207
  Transmission Date: 20210114
  Serious: No
  Sender: FDA-Public Use
  Company Number: US-PFIZER INC-2020408806

PATIENT
  Age: 61 Year
  Sex: Female

DRUGS (1)
  1. RELPAX [Suspect]
     Active Substance: ELETRIPTAN HYDROBROMIDE
     Indication: HEADACHE
     Dosage: 20 MG, AS NEEDED

REACTIONS (3)
  - Illness [Not Recovered/Not Resolved]
  - Migraine [Unknown]
  - Product dispensing error [Unknown]
